FAERS Safety Report 24058728 (Version 1)
Quarter: 2024Q3

REPORT INFORMATION
  Report Type: Spontaneous
  Country: PT (occurrence: PT)
  Receive Date: 20240708
  Receipt Date: 20240708
  Transmission Date: 20241016
  Serious: Yes (Disabling, Other)
  Sender: AUROBINDO
  Company Number: PT-INFARMED-J202406-475

PATIENT
  Sex: Female

DRUGS (1)
  1. GEMFIBROZIL [Suspect]
     Active Substance: GEMFIBROZIL
     Indication: Product used for unknown indication
     Dosage: UNK
     Route: 048
     Dates: start: 202402

REACTIONS (4)
  - Suicidal ideation [Recovering/Resolving]
  - Generalised anxiety disorder [Recovering/Resolving]
  - Mental disorder [Recovering/Resolving]
  - Depressed mood [Recovering/Resolving]

NARRATIVE: CASE EVENT DATE: 20240317
